FAERS Safety Report 13795539 (Version 1)
Quarter: 2017Q3

REPORT INFORMATION
  Report Type: Spontaneous
  Country: US (occurrence: US)
  Receive Date: 20170726
  Receipt Date: 20170726
  Transmission Date: 20171127
  Serious: No
  Sender: FDA-Public Use
  Company Number: US-LUPIN PHARMACEUTICALS INC.-E2B_00006962

PATIENT
  Age: 70 Year
  Sex: Female

DRUGS (1)
  1. TRIMETHOPRIM. [Suspect]
     Active Substance: TRIMETHOPRIM
     Indication: URINARY TRACT DISORDER
     Dosage: 100 MG,QD,
     Route: 048
     Dates: start: 20161203, end: 20161212

REACTIONS (1)
  - Laboratory test interference [Unknown]

NARRATIVE: CASE EVENT DATE: 20161213
